FAERS Safety Report 14714931 (Version 2)
Quarter: 2018Q2

REPORT INFORMATION
  Report Type: Spontaneous
  Country: IT (occurrence: IT)
  Receive Date: 20180404
  Receipt Date: 20180413
  Transmission Date: 20180711
  Serious: Yes (Other)
  Sender: FDA-Public Use
  Company Number: IT-TEVA-2018-IT-875176

PATIENT
  Age: 42 Year
  Sex: Female

DRUGS (4)
  1. COPAXONE [Suspect]
     Active Substance: GLATIRAMER ACETATE
     Indication: SECONDARY PROGRESSIVE MULTIPLE SCLEROSIS
     Route: 058
     Dates: start: 20170401
  2. TIMOGEL [Concomitant]
     Active Substance: TIMOLOL MALEATE
     Indication: GLAUCOMA
     Route: 047
  3. TRAVATAN [Concomitant]
     Active Substance: TRAVOPROST
     Indication: GLAUCOMA
     Route: 047
  4. MIRAPEXIN 0.18?MG TABLETS [Concomitant]
     Indication: MUSCLE RIGIDITY
     Route: 048

REACTIONS (2)
  - Blood alkaline phosphatase increased [Unknown]
  - Haematuria [Unknown]

NARRATIVE: CASE EVENT DATE: 20180116
